FAERS Safety Report 12996713 (Version 1)
Quarter: 2016Q4

REPORT INFORMATION
  Report Type: Spontaneous
  Country: IN (occurrence: IN)
  Receive Date: 20161204
  Receipt Date: 20161204
  Transmission Date: 20170207
  Serious: Yes (Other)
  Sender: FDA-Public Use
  Company Number: PHHY2016IN161767

PATIENT
  Age: 75 Year
  Sex: Female

DRUGS (2)
  1. IMATINIB [Suspect]
     Active Substance: IMATINIB
     Indication: CHRONIC MYELOID LEUKAEMIA
     Dosage: 400 MG, BID
     Route: 065
  2. IMATINIB [Suspect]
     Active Substance: IMATINIB
     Dosage: UNK
     Route: 065

REACTIONS (6)
  - Pseudoporphyria [Recovered/Resolved]
  - Blister [Recovered/Resolved]
  - Scar [Recovered/Resolved]
  - Milia [Recovered/Resolved]
  - Skin erosion [Recovered/Resolved]
  - Disease recurrence [Unknown]
